FAERS Safety Report 15463578 (Version 2)
Quarter: 2018Q4

REPORT INFORMATION
  Report Type: Spontaneous
  Country: US (occurrence: US)
  Receive Date: 20181004
  Receipt Date: 20181008
  Transmission Date: 20190204
  Serious: Yes (Life-Threatening, Hospitalization)
  Sender: FDA-Public Use
  Company Number: US-ROCHE-2193901

PATIENT
  Sex: Female

DRUGS (9)
  1. PREDNISONE. [Concomitant]
     Active Substance: PREDNISONE
     Route: 065
  2. FUROSEMIDE. [Concomitant]
     Active Substance: FUROSEMIDE
     Route: 065
  3. DIGOXIN. [Concomitant]
     Active Substance: DIGOXIN
     Route: 065
  4. ELIQUIS [Concomitant]
     Active Substance: APIXABAN
     Route: 065
  5. ADVAIR HFA [Concomitant]
     Active Substance: FLUTICASONE PROPIONATE\SALMETEROL XINAFOATE
     Dosage: AS NEEDED
     Route: 065
  6. PROAIR HFA [Concomitant]
     Active Substance: ALBUTEROL SULFATE
     Dosage: NASAL SPRAY AS NEEDED
     Route: 045
  7. GLIMEPIRIDE. [Concomitant]
     Active Substance: GLIMEPIRIDE
     Route: 065
  8. ACTEMRA [Suspect]
     Active Substance: TOCILIZUMAB
     Indication: TEMPORAL ARTERITIS
     Dosage: 0.9 ML
     Route: 058
  9. METOPROLOL. [Concomitant]
     Active Substance: METOPROLOL
     Route: 065

REACTIONS (2)
  - Eye pain [Unknown]
  - Product quality issue [Unknown]
